FAERS Safety Report 13230430 (Version 1)
Quarter: 2017Q1

REPORT INFORMATION
  Report Type: Spontaneous
  Country: NO (occurrence: NO)
  Receive Date: 20170214
  Receipt Date: 20170214
  Transmission Date: 20170428
  Serious: Yes (Other)
  Sender: FDA-Public Use
  Company Number: NO-PFIZER INC-2014223858

PATIENT
  Age: 9 Year
  Sex: Male

DRUGS (1)
  1. VINCRISTINE [Suspect]
     Active Substance: VINCRISTINE
     Indication: ACUTE LYMPHOCYTIC LEUKAEMIA
     Dosage: 2 MG, UNK
     Route: 042

REACTIONS (10)
  - Incorrect route of drug administration [Unknown]
  - Pain in jaw [Unknown]
  - Product label confusion [Unknown]
  - Dysgeusia [Unknown]
  - Headache [Unknown]
  - Constipation [Unknown]
  - Gastric ulcer haemorrhage [Unknown]
  - Neurological symptom [Not Recovered/Not Resolved]
  - Gastrointestinal pain [Unknown]
  - Diarrhoea [Unknown]
